FAERS Safety Report 19943272 (Version 1)
Quarter: 2021Q4

REPORT INFORMATION
  Report Type: Spontaneous
  Country: US (occurrence: US)
  Receive Date: 20211011
  Receipt Date: 20211011
  Transmission Date: 20220304
  Serious: Yes (unspecified)
  Sender: FDA-Public Use
  Company Number: None

PATIENT
  Age: 23 Year
  Sex: Female
  Weight: 51.75 kg

DRUGS (8)
  1. AJOVY [Suspect]
     Active Substance: FREMANEZUMAB-VFRM
     Indication: Migraine
     Dosage: ?          OTHER STRENGTH:1.5 ML;QUANTITY:1 INJECTION(S);OTHER FREQUENCY:EVERY 4 WEEKS;
     Route: 058
     Dates: start: 20210624, end: 20210826
  2. MONO-LINYAH [Concomitant]
     Active Substance: ETHINYL ESTRADIOL\NORGESTIMATE
  3. TOPIRAMATE [Concomitant]
     Active Substance: TOPIRAMATE
  4. RELPAX [Concomitant]
     Active Substance: ELETRIPTAN HYDROBROMIDE
  5. SPIRONOLACTONE [Concomitant]
     Active Substance: SPIRONOLACTONE
  6. IBUPROFEN [Concomitant]
     Active Substance: IBUPROFEN
  7. NUTRAFOL VITAMINS [Concomitant]
  8. VITAMINS [Concomitant]
     Active Substance: VITAMINS

REACTIONS (7)
  - Alopecia [None]
  - Contusion [None]
  - Alopecia [None]
  - Fatigue [None]
  - Platelet count decreased [None]
  - Product substitution issue [None]
  - Somnolence [None]
